FAERS Safety Report 8965132 (Version 1)
Quarter: 2012Q4

REPORT INFORMATION
  Report Type: 
  Country: GR (occurrence: GR)
  Receive Date: 20121213
  Receipt Date: 20121213
  Transmission Date: 20130627
  Serious: Yes (Death, Other)
  Sender: FDA-Public Use
  Company Number: PHHY2012GR114300

PATIENT

DRUGS (3)
  1. FOSFOMYCIN [Suspect]
     Dosage: 4 g, QID
     Route: 042
  2. MEROPENEM [Suspect]
     Dosage: 2 g, TID
  3. COLISTIN [Suspect]
     Dosage: 120000 IU/kg, per day

REACTIONS (2)
  - Sepsis [Fatal]
  - Drug resistance [Unknown]
